FAERS Safety Report 14563191 (Version 1)
Quarter: 2018Q1

REPORT INFORMATION
  Report Type: Spontaneous
  Country: US (occurrence: US)
  Receive Date: 20180222
  Receipt Date: 20180222
  Transmission Date: 20180509
  Serious: No
  Sender: FDA-Public Use
  Company Number: None

PATIENT
  Sex: Female
  Weight: 58.5 kg

DRUGS (15)
  1. MULTI-VITAMIN [Concomitant]
     Active Substance: .ALPHA.-TOCOPHEROL ACETATE, DL-\ASCORBIC ACID\CYANOCOBALAMIN\FLUORIDE ION\FOLIC ACID\NIACIN\PYRIDOXINE\RIBOFLAVIN\THIAMINE\VITAMIN A\VITAMIN D
  2. MUCINEX [Concomitant]
     Active Substance: GUAIFENESIN
  3. VITAMIN C [Concomitant]
     Active Substance: ASCORBIC ACID
  4. XYZAL [Concomitant]
     Active Substance: LEVOCETIRIZINE DIHYDROCHLORIDE
  5. BIRTH CONTROL [Concomitant]
     Active Substance: UNSPECIFIED INGREDIENT
  6. CALCIUM [Concomitant]
     Active Substance: CALCIUM
  7. TUMERIC [Concomitant]
     Active Substance: HERBALS\TURMERIC
  8. AMOXICILLIN-CLAV, GENERIC FOR AUGMENTIN [Suspect]
     Active Substance: AMOXICILLIN\CLAVULANATE POTASSIUM
     Indication: EYELID INFECTION
     Dosage: ?          QUANTITY:20 TABLET(S);?
     Route: 048
     Dates: start: 20180206, end: 20180207
  9. SYNTHROID [Concomitant]
     Active Substance: LEVOTHYROXINE SODIUM
  10. DYMISTA [Concomitant]
     Active Substance: AZELASTINE HYDROCHLORIDE\FLUTICASONE PROPIONATE
  11. PROBIOTICS [Concomitant]
     Active Substance: PROBIOTICS NOS
  12. VITAMIN D [Concomitant]
     Active Substance: CHOLECALCIFEROL
  13. FISH OIL [Concomitant]
     Active Substance: FISH OIL
  14. MAGNESIUM [Concomitant]
     Active Substance: MAGNESIUM
  15. ALLERGY EYE DROPS [Concomitant]
     Active Substance: NAPHAZOLINE HYDROCHLORIDE\PHENIRAMINE MALEATE

REACTIONS (2)
  - Paraesthesia [None]
  - Hypoaesthesia [None]

NARRATIVE: CASE EVENT DATE: 20180206
